FAERS Safety Report 25064822 (Version 2)
Quarter: 2025Q1

REPORT INFORMATION
  Report Type: Spontaneous
  Country: DE (occurrence: DE)
  Receive Date: 20250311
  Receipt Date: 20250324
  Transmission Date: 20250409
  Serious: Yes (Other)
  Sender: TEVA
  Company Number: DE-TEVA-VS-3306909

PATIENT
  Sex: Female

DRUGS (5)
  1. ARIPIPRAZOLE [Suspect]
     Active Substance: ARIPIPRAZOLE
     Indication: Product used for unknown indication
     Route: 065
  2. CLOZAPINE [Suspect]
     Active Substance: CLOZAPINE
     Indication: Product used for unknown indication
     Route: 065
  3. CLOZAPINE [Suspect]
     Active Substance: CLOZAPINE
     Indication: Product used for unknown indication
     Route: 065
  4. PIRENZEPINE [Suspect]
     Active Substance: PIRENZEPINE
     Indication: Product used for unknown indication
     Route: 065
  5. PAROXETINE [Suspect]
     Active Substance: PAROXETINE
     Indication: Product used for unknown indication
     Route: 065

REACTIONS (4)
  - Salivary hypersecretion [Unknown]
  - Breast enlargement [Unknown]
  - Fatigue [Unknown]
  - Disturbance in attention [Unknown]
